FAERS Safety Report 7102050-3 (Version None)
Quarter: 2010Q4

REPORT INFORMATION
  Report Type: 
  Country: None (occurrence: None)
  Receive Date: 20101115
  Receipt Date: 20101104
  Transmission Date: 20110411
  Serious: Yes (Life-Threatening)
  Sender: FDA-Public Use
  Company Number: SI-JNJFOC-20101104103

PATIENT
  Sex: Female
  Weight: 76 kg

DRUGS (4)
  1. REMICADE [Suspect]
     Indication: RHEUMATOID ARTHRITIS
     Route: 042
  2. MEDROL [Concomitant]
     Route: 048
  3. CALCIUM CARBONATE [Concomitant]
  4. ROCALTROL [Concomitant]
     Route: 048

REACTIONS (3)
  - ASPHYXIA [None]
  - HYPERSENSITIVITY [None]
  - HYPOTENSION [None]
